FAERS Safety Report 8810495 (Version 1)
Quarter: 2012Q4

REPORT INFORMATION
  Report Type: 
  Country: US (occurrence: US)
  Receive Date: 20120927
  Receipt Date: 20120927
  Transmission Date: 20130627
  Serious: No
  Sender: FDA-Public Use
  Company Number: US-BIOGENIDEC-2012BI038434

PATIENT
  Sex: Female

DRUGS (1)
  1. AVONEX [Suspect]
     Indication: MULTIPLE SCLEROSIS
     Route: 030
     Dates: start: 20040909

REACTIONS (5)
  - Fear [Unknown]
  - Influenza like illness [Recovered/Resolved]
  - Musculoskeletal stiffness [Recovered/Resolved]
  - Malaise [Unknown]
  - Muscle spasms [Recovered/Resolved]
